FAERS Safety Report 13503013 (Version 1)
Quarter: 2017Q2

REPORT INFORMATION
  Report Type: Report from Study
  Country: CO (occurrence: CO)
  Receive Date: 20170502
  Receipt Date: 20170502
  Transmission Date: 20170830
  Serious: Yes (Death, Other)
  Sender: FDA-Public Use
  Company Number: CO-AMGEN-COLSL2016105459

PATIENT
  Age: 54 Year
  Sex: Male
  Weight: 64 kg

DRUGS (7)
  1. CAPECITABINE. [Concomitant]
     Active Substance: CAPECITABINE
     Indication: COLORECTAL CANCER METASTATIC
     Dosage: UNK
     Dates: end: 20160726
  2. SUNSCREEN [Concomitant]
     Active Substance: HOMOSALATE\OCTINOXATE\OCTISALATE\OXYBENZONE\TITANIUM DIOXIDE
     Dosage: UNK
  3. VECTIBIX [Suspect]
     Active Substance: PANITUMUMAB
     Indication: COLORECTAL CANCER METASTATIC
     Dosage: 390 MG, Q2WK
     Route: 042
     Dates: start: 20151028, end: 20160726
  4. DESONIDE. [Concomitant]
     Active Substance: DESONIDE
     Dosage: UNK
  5. DOXYCYCLINE. [Concomitant]
     Active Substance: DOXYCYCLINE
     Dosage: UNK
  6. IRINOTECAN [Concomitant]
     Active Substance: IRINOTECAN
     Indication: COLORECTAL CANCER METASTATIC
     Dosage: UNK
     Dates: end: 20160726
  7. VECTIBIX [Suspect]
     Active Substance: PANITUMUMAB
     Dosage: 390 MG, Q2WK
     Route: 042
     Dates: end: 20170327

REACTIONS (7)
  - Inflammation [Recovering/Resolving]
  - Jaundice [Not Recovered/Not Resolved]
  - Death [Fatal]
  - Disease progression [Not Recovered/Not Resolved]
  - Ascites [Not Recovered/Not Resolved]
  - Xerosis [Recovering/Resolving]
  - Back pain [Recovering/Resolving]

NARRATIVE: CASE EVENT DATE: 20170119
